FAERS Safety Report 9820360 (Version 1)
Quarter: 2014Q1

REPORT INFORMATION
  Report Type: Spontaneous
  Country: US (occurrence: None)
  Receive Date: 20140114
  Receipt Date: 20140114
  Transmission Date: 20141002
  Serious: No
  Sender: FDA-Public Use
  Company Number: None

PATIENT
  Age: 64 Year
  Sex: Male
  Weight: 81.65 kg

DRUGS (1)
  1. AMBIEN (GENERIC) 10MG [Suspect]
     Indication: INSOMNIA
     Dosage: TAKEN BY MOUTH, AT BEDTIME
     Dates: start: 20130605, end: 20140106

REACTIONS (3)
  - Product substitution issue [None]
  - Sleep disorder [None]
  - Drug ineffective [None]
